FAERS Safety Report 19504467 (Version 1)
Quarter: 2021Q3

REPORT INFORMATION
  Report Type: Other
  Country: FR (occurrence: FR)
  Receive Date: 20210707
  Receipt Date: 20210707
  Transmission Date: 20211014
  Serious: Yes (Hospitalization)
  Sender: FDA-Public Use
  Company Number: FR-EMD SERONO-9249082

PATIENT
  Age: 76 Year
  Sex: Male

DRUGS (2)
  1. ACETAMINOPHEN. [Concomitant]
     Active Substance: ACETAMINOPHEN
     Indication: PREMEDICATION
  2. AVELUMAB [Suspect]
     Active Substance: AVELUMAB
     Indication: COLON CANCER METASTATIC

REACTIONS (3)
  - Palmoplantar keratoderma [Recovering/Resolving]
  - Lichenoid keratosis [Recovering/Resolving]
  - Keratosis pilaris [Recovering/Resolving]
